FAERS Safety Report 18963495 (Version 1)
Quarter: 2021Q1

REPORT INFORMATION
  Report Type: Report from Study
  Country: GB (occurrence: GB)
  Receive Date: 20210303
  Receipt Date: 20210303
  Transmission Date: 20210420
  Serious: Yes (Other)
  Sender: FDA-Public Use
  Company Number: NVSC2021GB040656

PATIENT
  Sex: Female

DRUGS (1)
  1. OMNITROPE [Suspect]
     Active Substance: SOMATROPIN
     Indication: PRODUCT USED FOR UNKNOWN INDICATION
     Dosage: 0.5 MG, QD (AS DIRECTED)
     Route: 065
     Dates: start: 20161201

REACTIONS (3)
  - Behaviour disorder [Unknown]
  - Product dose omission issue [Unknown]
  - Autism spectrum disorder [Unknown]
